FAERS Safety Report 15698081 (Version 1)
Quarter: 2018Q4

REPORT INFORMATION
  Report Type: Report from Study
  Country: CO (occurrence: CO)
  Receive Date: 20181207
  Receipt Date: 20181207
  Transmission Date: 20190205
  Serious: Yes (Hospitalization)
  Sender: FDA-Public Use
  Company Number: CO-ASTELLAS-2018US052037

PATIENT
  Age: 18 Year
  Sex: Male
  Weight: 54 kg

DRUGS (2)
  1. TACROLIMUS. [Suspect]
     Active Substance: TACROLIMUS
     Indication: RENAL TRANSPLANT
     Route: 048
     Dates: start: 20051202
  2. MYCOPHENOLATE [Concomitant]
     Active Substance: MYCOPHENOLIC ACID
     Indication: PRODUCT USED FOR UNKNOWN INDICATION
     Route: 048
     Dates: start: 20051202

REACTIONS (8)
  - Kidney transplant rejection [Recovering/Resolving]
  - Creatinine renal clearance abnormal [Unknown]
  - Blood potassium abnormal [Unknown]
  - Chills [Recovering/Resolving]
  - Headache [Recovering/Resolving]
  - Psychiatric symptom [Recovering/Resolving]
  - Diarrhoea [Recovering/Resolving]
  - Vomiting [Recovering/Resolving]

NARRATIVE: CASE EVENT DATE: 20181108
